FAERS Safety Report 5375124-5 (Version None)
Quarter: 2007Q2

REPORT INFORMATION
  Report Type: 
  Country: None (occurrence: None)
  Receive Date: 20070629
  Receipt Date: 20070209
  Transmission Date: 20071010
  Serious: No
  Sender: FDA-Public Use
  Company Number: US-ASTRAZENECA-2007UW02790

PATIENT
  Age: 775 Month
  Sex: Male

DRUGS (3)
  1. ZOLADEX [Suspect]
     Indication: PROSTATE CANCER
     Route: 058
     Dates: start: 20030201
  2. CALCIUM CHLORIDE [Concomitant]
  3. ZOLEDRONIC ACID [Concomitant]
     Indication: BONE DISORDER
     Dosage: INFUSION EVERY 6 MONTHS

REACTIONS (5)
  - ARTHRALGIA [None]
  - BACK PAIN [None]
  - JOINT SWELLING [None]
  - OSTEOPENIA [None]
  - PELVIC PAIN [None]
